FAERS Safety Report 24674954 (Version 1)
Quarter: 2024Q4

REPORT INFORMATION
  Report Type: Spontaneous
  Country: BR (occurrence: BR)
  Receive Date: 20241128
  Receipt Date: 20241128
  Transmission Date: 20250114
  Serious: Yes (Other)
  Sender: ORGANON
  Company Number: BR-ORGANON-O2411BRA002261

PATIENT

DRUGS (1)
  1. ETONOGESTREL [Suspect]
     Active Substance: ETONOGESTREL
     Dosage: 1 IMPLANT
     Route: 059
     Dates: start: 202405

REACTIONS (1)
  - Lipolysis procedure [Unknown]

NARRATIVE: CASE EVENT DATE: 20240101
